FAERS Safety Report 5613771-3 (Version None)
Quarter: 2008Q1

REPORT INFORMATION
  Report Type: 
  Country: None (occurrence: None)
  Receive Date: 20080205
  Receipt Date: 20080129
  Transmission Date: 20080703
  Serious: Yes (Death, Hospitalization)
  Sender: FDA-Public Use
  Company Number: US-JNJFOC-20080101202

PATIENT
  Sex: Male
  Weight: 74 kg

DRUGS (8)
  1. REMICADE [Suspect]
     Indication: GRAFT VERSUS HOST DISEASE
  2. METHYLPREDNISOLONE [Concomitant]
  3. LEVAQUIN [Concomitant]
  4. PRILOSEC [Concomitant]
  5. LANTUS [Concomitant]
  6. SLOW MAG [Concomitant]
  7. OXYCODONE HCL [Concomitant]
  8. CELLCEPT [Concomitant]

REACTIONS (3)
  - FUSARIUM INFECTION [None]
  - PLATELET COUNT DECREASED [None]
  - TRANSAMINASES INCREASED [None]
